FAERS Safety Report 9190051 (Version 2)
Quarter: 2013Q2

REPORT INFORMATION
  Report Type: Spontaneous
  Country: US (occurrence: US)
  Receive Date: 20130326
  Receipt Date: 20130411
  Transmission Date: 20140414
  Serious: No
  Sender: FDA-Public Use
  Company Number: US-PFIZER INC-2013097484

PATIENT
  Age: 45 Year
  Sex: Female

DRUGS (2)
  1. LYRICA [Suspect]
     Indication: NEURALGIA
     Dosage: 50 MG, 1X/DAY
     Route: 048
     Dates: end: 201212
  2. NUCYNTA [Concomitant]
     Indication: PAIN
     Dosage: 50 MG, AS NEEDED Q 4-6 HOURS/ Q 6-8 HOURS
     Dates: start: 20120413, end: 20130325

REACTIONS (1)
  - Vision blurred [Not Recovered/Not Resolved]
